FAERS Safety Report 7289995-9 (Version None)
Quarter: 2011Q1

REPORT INFORMATION
  Report Type: 
  Country: None (occurrence: None)
  Receive Date: 20110214
  Receipt Date: 20110203
  Transmission Date: 20110831
  Serious: Yes (Hospitalization, Other)
  Sender: FDA-Public Use
  Company Number: BR-US-EMD SERONO, INC.-7040653

PATIENT
  Sex: Female

DRUGS (4)
  1. IBUPROFEN [Concomitant]
  2. MANTIDAN [Concomitant]
  3. REBIF [Suspect]
     Indication: PRIMARY PROGRESSIVE MULTIPLE SCLEROSIS
     Dates: start: 20090729
  4. CITTA [Suspect]
     Indication: PRODUCT USED FOR UNKNOWN INDICATION
     Dates: start: 20090101

REACTIONS (13)
  - ASTHENIA [None]
  - NERVOUSNESS [None]
  - DYSPNOEA [None]
  - MALAISE [None]
  - WEIGHT DECREASED [None]
  - PYREXIA [None]
  - WEIGHT INCREASED [None]
  - DYSSTASIA [None]
  - HEADACHE [None]
  - PARAESTHESIA [None]
  - BALANCE DISORDER [None]
  - URINARY INCONTINENCE [None]
  - OFF LABEL USE [None]
